FAERS Safety Report 8382044-0 (Version None)
Quarter: 2012Q2

REPORT INFORMATION
  Report Type: 
  Country: None (occurrence: None)
  Receive Date: 20120523
  Receipt Date: 20120523
  Transmission Date: 20120825
  Serious: No
  Sender: FDA-Public Use
  Company Number: None

PATIENT
  Age: 56 Year
  Sex: Female
  Weight: 107.0489 kg

DRUGS (1)
  1. LEVAQUIN [Suspect]
     Dosage: ORAL
     Route: 048

REACTIONS (7)
  - CONDITION AGGRAVATED [None]
  - PAIN IN EXTREMITY [None]
  - DRUG INEFFECTIVE [None]
  - FIBROMYALGIA [None]
  - FATIGUE [None]
  - ARTHRALGIA [None]
  - MYALGIA [None]
